FAERS Safety Report 9452852 (Version 1)
Quarter: 2013Q3

REPORT INFORMATION
  Report Type: Spontaneous
  Country: FR (occurrence: FR)
  Receive Date: 20130812
  Receipt Date: 20130812
  Transmission Date: 20140515
  Serious: Yes (Hospitalization)
  Sender: FDA-Public Use
  Company Number: FR-JNJFOC-20130803074

PATIENT
  Age: 35 Year
  Sex: Female

DRUGS (4)
  1. REMICADE [Suspect]
     Indication: ANKYLOSING SPONDYLITIS
     Dosage: ONE INFUSION
     Route: 042
     Dates: start: 20130122, end: 20130122
  2. REMICADE [Suspect]
     Indication: CROHN^S DISEASE
     Dosage: ONE INFUSION
     Route: 042
     Dates: start: 20130122, end: 20130122
  3. HUMIRA [Suspect]
     Indication: ANKYLOSING SPONDYLITIS
     Dosage: 8 MONTHS
     Route: 058
     Dates: start: 201205, end: 20130117
  4. HUMIRA [Suspect]
     Indication: CROHN^S DISEASE
     Dosage: 8 MONTHS
     Route: 058
     Dates: start: 201205, end: 20130117

REACTIONS (1)
  - Systemic lupus erythematosus [Recovered/Resolved]
